FAERS Safety Report 22531408 (Version 5)
Quarter: 2024Q3

REPORT INFORMATION
  Report Type: Spontaneous
  Country: US (occurrence: US)
  Receive Date: 20230607
  Receipt Date: 20240918
  Transmission Date: 20241017
  Serious: Yes (Death, Other)
  Sender: PFIZER
  Company Number: US-PFIZER INC-PV202300094104

PATIENT
  Age: 44 Year
  Sex: Female

DRUGS (2)
  1. BRAFTOVI [Suspect]
     Active Substance: ENCORAFENIB
     Dosage: TAKE 6 CAPSULE WITH OR WITHOUT FOOD. SWALLOW CAPSULE WHOLE; DO NOT BREAK OPEN, CRUSH, OR CHEW
     Route: 048
  2. MEKTOVI [Suspect]
     Active Substance: BINIMETINIB
     Dosage: 6 CAPSULE DAILY

REACTIONS (2)
  - Death [Fatal]
  - Malaise [Unknown]
